FAERS Safety Report 7773010 (Version 7)
Quarter: 2012Q4

REPORT INFORMATION
  Report Type: 
  Country: IT (occurrence: IT)
  Receive Date: 20110125
  Receipt Date: 20121019
  Transmission Date: 20130627
  Serious: Yes (Death, Life-Threatening, Hospitalization, Other)
  Sender: FDA-Public Use
  Company Number: IT-GENZYME-CLOF-1001391

PATIENT
  Age: 5 Year
  Sex: Female
  Weight: 23.4 kg

DRUGS (3)
  1. EVOLTRA [Suspect]
     Indication: ACUTE LYMPHOCYTIC LEUKAEMIA
     Dosage: 30 mg, once
     Route: 042
     Dates: start: 20101125, end: 20101126
  2. CYCLOPHOSPHAMIDE [Suspect]
     Indication: ACUTE LYMPHOCYTIC LEUKAEMIA
     Dosage: 365 mg, qd
     Route: 042
     Dates: start: 20101125, end: 20101126
  3. ETOPOSIDE [Suspect]
     Indication: ACUTE LYMPHOCYTIC LEUKAEMIA
     Dosage: 80 mg, qd
     Route: 042
     Dates: start: 20101125, end: 20101126

REACTIONS (5)
  - Cardiomyopathy [Recovered/Resolved]
  - Left ventricular dysfunction [Recovered/Resolved]
  - Acute pulmonary oedema [Recovered/Resolved]
  - Fungal infection [Fatal]
  - Renal failure [Unknown]
